FAERS Safety Report 25736180 (Version 1)
Quarter: 2025Q3

REPORT INFORMATION
  Report Type: Spontaneous
  Country: US (occurrence: US)
  Receive Date: 20250828
  Receipt Date: 20250828
  Transmission Date: 20251020
  Serious: Yes (Hospitalization, Other)
  Sender: CORCEPT
  Company Number: US-CORCEPT THERAPEUTICS INC.-US-2025CRT003624

PATIENT

DRUGS (1)
  1. KORLYM [Suspect]
     Active Substance: MIFEPRISTONE
     Indication: Product used for unknown indication
     Route: 065
     Dates: end: 202508

REACTIONS (2)
  - Atrial fibrillation [Unknown]
  - Peripheral swelling [Unknown]

NARRATIVE: CASE EVENT DATE: 20250812
